FAERS Safety Report 11656191 (Version 1)
Quarter: 2015Q4

REPORT INFORMATION
  Report Type: Spontaneous
  Country: US (occurrence: US)
  Receive Date: 20151023
  Receipt Date: 20151023
  Transmission Date: 20160304
  Serious: No
  Sender: FDA-Public Use
  Company Number: US-DSJP-DSU-2015-124559

PATIENT
  Age: 7 Decade
  Sex: Male

DRUGS (2)
  1. SAVAYSA [Suspect]
     Active Substance: EDOXABAN TOSYLATE
     Indication: ATRIAL FIBRILLATION
     Dosage: 60 MG, UNK, 7-10 DAYS
  2. COUMADIN [Concomitant]
     Active Substance: WARFARIN SODIUM
     Indication: ATRIAL FIBRILLATION
     Dosage: UNK

REACTIONS (1)
  - Faeces discoloured [Recovered/Resolved]
